FAERS Safety Report 7622592-1 (Version None)
Quarter: 2011Q3

REPORT INFORMATION
  Report Type: 
  Country: None (occurrence: None)
  Receive Date: 20110712
  Receipt Date: 20110415
  Transmission Date: 20111222
  Serious: Yes (Death, Hospitalization)
  Sender: FDA-Public Use
  Company Number: 2011AP000491

PATIENT
  Age: 64 Year
  Sex: Male

DRUGS (2)
  1. TAMSULOSIN HYDROCHLORIDE [Concomitant]
  2. CARBIDOPA + LEVODOPA [Suspect]
     Indication: PARKINSON'S DISEASE
     Dosage: 20 TAB; TAB; PO, QD, 1 TAB; TAB; PO; Q3H, 20 TAB; TAB; PO; QD
     Route: 048
     Dates: start: 20031201

REACTIONS (5)
  - HYPERHIDROSIS [None]
  - DROOLING [None]
  - PNEUMONIA ASPIRATION [None]
  - LOSS OF CONSCIOUSNESS [None]
  - URINARY INCONTINENCE [None]
